FAERS Safety Report 7343829-2 (Version None)
Quarter: 2011Q1

REPORT INFORMATION
  Report Type: 
  Country: None (occurrence: None)
  Receive Date: 20110310
  Receipt Date: 20110304
  Transmission Date: 20110831
  Serious: Yes (Other)
  Sender: FDA-Public Use
  Company Number: CN-ROCHE-758148

PATIENT
  Age: 10 Year
  Sex: Male

DRUGS (2)
  1. CEFTRIAXONE SODIUM [Suspect]
     Dosage: 1.5 GM EVERY DAY (IN 100 ML OF GLUCOSE), DRUG: CEFTRIAXONE
     Route: 041
  2. CEFUROXIME [Concomitant]
     Indication: ANTI-INFECTIVE THERAPY

REACTIONS (1)
  - CHOLELITHIASIS [None]
